FAERS Safety Report 21752190 (Version 1)
Quarter: 2022Q4

REPORT INFORMATION
  Report Type: Report from Study
  Country: US (occurrence: US)
  Receive Date: 20221220
  Receipt Date: 20221220
  Transmission Date: 20230112
  Serious: Yes (Other)
  Sender: FDA-Public Use
  Company Number: US-ABBVIE-4242613

PATIENT
  Sex: Female

DRUGS (1)
  1. HUMIRA [Suspect]
     Active Substance: ADALIMUMAB
     Indication: Hidradenitis
     Route: 058

REACTIONS (3)
  - Knee arthroplasty [Recovering/Resolving]
  - Arthralgia [Recovering/Resolving]
  - Vein disorder [Recovering/Resolving]

NARRATIVE: CASE EVENT DATE: 20200101
